FAERS Safety Report 6261311-0 (Version None)
Quarter: 2009Q3

REPORT INFORMATION
  Report Type: 
  Country: None (occurrence: None)
  Receive Date: 20090709
  Receipt Date: 20090513
  Transmission Date: 20100115
  Serious: No
  Sender: FDA-Public Use
  Company Number: US-KINGPHARMUSA00001-K200900592

PATIENT
  Sex: Female
  Weight: 58.957 kg

DRUGS (1)
  1. LEVOXYL [Suspect]
     Indication: THYROID DISORDER
     Dosage: 137 MCG, QD
     Route: 048
     Dates: start: 20090407, end: 20090413

REACTIONS (12)
  - ABDOMINAL PAIN [None]
  - BLOOD PRESSURE INCREASED [None]
  - CHEST PAIN [None]
  - DECREASED APPETITE [None]
  - DYSPEPSIA [None]
  - ERUCTATION [None]
  - FATIGUE [None]
  - FLUSHING [None]
  - HEADACHE [None]
  - HEART RATE INCREASED [None]
  - INSOMNIA [None]
  - TINNITUS [None]
